FAERS Safety Report 7927271-9 (Version None)
Quarter: 2011Q4

REPORT INFORMATION
  Report Type: 
  Country: None (occurrence: None)
  Receive Date: 20111118
  Receipt Date: 20111109
  Transmission Date: 20120403
  Serious: Yes (Hospitalization)
  Sender: FDA-Public Use
  Company Number: BR-MEDIMMUNE-MEDI-0013589

PATIENT
  Sex: Female

DRUGS (7)
  1. SYNAGIS [Suspect]
     Indication: BRONCHOPULMONARY DYSPLASIA
     Dates: start: 20110609, end: 20110609
  2. PANTOMOL [Concomitant]
     Indication: WHEEZING
     Dates: start: 20101230
  3. OMEPRAZOLE MAGNESIUM [Concomitant]
     Dates: start: 20101230
  4. GEVITAL [Concomitant]
  5. PREDNISOLONE ACETATE [Concomitant]
     Indication: WHEEZING
     Dates: start: 20101230, end: 20110915
  6. SYNAGIS [Suspect]
     Dates: start: 20110708, end: 20110808
  7. FERROUS SULFATE TAB [Concomitant]

REACTIONS (6)
  - OXYGEN SATURATION DECREASED [None]
  - RESPIRATORY DISTRESS [None]
  - DYSPNOEA [None]
  - BRONCHOPULMONARY DYSPLASIA [None]
  - PNEUMONIA [None]
  - FATIGUE [None]
